FAERS Safety Report 17006300 (Version 1)
Quarter: 2019Q4

REPORT INFORMATION
  Report Type: Spontaneous
  Country: US (occurrence: US)
  Receive Date: 20191106
  Receipt Date: 20191106
  Transmission Date: 20200122
  Serious: Yes (Death)
  Sender: FDA-Public Use
  Company Number: None

PATIENT
  Age: 66 Year
  Sex: Female
  Weight: 59.87 kg

DRUGS (1)
  1. FERRIC CARBOXYMALTOSE LV 750MG [Suspect]
     Active Substance: FERRIC CARBOXYMALTOSE
     Indication: ANAEMIA

REACTIONS (3)
  - Diarrhoea [None]
  - Septic shock [None]
  - Suspected product contamination [None]

NARRATIVE: CASE EVENT DATE: 20191009
